FAERS Safety Report 10201154 (Version 1)
Quarter: 2014Q2

REPORT INFORMATION
  Report Type: Spontaneous
  Country: US (occurrence: US)
  Receive Date: 20140528
  Receipt Date: 20140528
  Transmission Date: 20141212
  Serious: Yes (Other)
  Sender: FDA-Public Use
  Company Number: US-BAYER-2014-076482

PATIENT
  Sex: Female

DRUGS (3)
  1. MIRENA [Suspect]
     Indication: ENDOMETRIOSIS
     Dosage: 20 MCG/24HR, CONT
     Route: 015
     Dates: end: 201402
  2. ADVIL [Concomitant]
     Indication: BREAST PAIN
  3. ADVIL [Concomitant]
     Indication: BREAST TENDERNESS

REACTIONS (58)
  - Genital haemorrhage [None]
  - Suicidal ideation [None]
  - Heart rate irregular [Recovering/Resolving]
  - Mental impairment [None]
  - Arthralgia [None]
  - Depression [None]
  - Influenza like illness [None]
  - Hormone level abnormal [None]
  - Off label use [None]
  - Procedural pain [None]
  - Abnormal weight gain [None]
  - Alopecia [None]
  - Pain [None]
  - Malaise [None]
  - Anger [None]
  - Self esteem decreased [None]
  - Emotional disorder [None]
  - Speech disorder [None]
  - Activities of daily living impaired [None]
  - Skin disorder [None]
  - Dry skin [None]
  - Confusional state [None]
  - Fear [None]
  - Memory impairment [None]
  - Fatigue [None]
  - Asthenia [None]
  - Bone pain [None]
  - Breast pain [None]
  - Myalgia [None]
  - Vaginal discharge [None]
  - Mood altered [None]
  - Tinnitus [None]
  - Halo vision [None]
  - Night blindness [None]
  - Photophobia [None]
  - Somnolence [None]
  - Anxiety [None]
  - Abdominal distension [None]
  - Vision blurred [None]
  - Visual acuity reduced [None]
  - Disturbance in attention [None]
  - Feelings of worthlessness [None]
  - Dizziness [None]
  - Dyspnoea [Recovering/Resolving]
  - Personality disorder [None]
  - Headache [None]
  - Migraine [None]
  - Joint stiffness [None]
  - Joint swelling [None]
  - Pelvic discomfort [None]
  - Dysmenorrhoea [None]
  - Hypomenorrhoea [None]
  - Abdominal pain upper [None]
  - Hot flush [None]
  - Cognitive disorder [None]
  - Gait disturbance [None]
  - Breast tenderness [None]
  - Night sweats [None]
